FAERS Safety Report 7423967-6 (Version None)
Quarter: 2011Q2

REPORT INFORMATION
  Report Type: 
  Country: None (occurrence: None)
  Receive Date: 20110419
  Receipt Date: 20110329
  Transmission Date: 20111010
  Serious: Yes (Hospitalization)
  Sender: FDA-Public Use
  Company Number: B0710590A

PATIENT
  Age: 72 Year
  Sex: Male

DRUGS (1)
  1. ARIXTRA [Suspect]
     Dosage: 7.5MG PER DAY
     Route: 065
     Dates: start: 20110328, end: 20110329

REACTIONS (2)
  - NAUSEA [None]
  - ABDOMINAL PAIN [None]
